FAERS Safety Report 13701551 (Version 4)
Quarter: 2017Q4

REPORT INFORMATION
  Report Type: Spontaneous
  Country: BR (occurrence: BR)
  Receive Date: 20170629
  Receipt Date: 20171004
  Transmission Date: 20180320
  Serious: Yes (Hospitalization, Other)
  Sender: FDA-Public Use
  Company Number: BR-ABBVIE-17P-020-2024257-00

PATIENT
  Age: 72 Year
  Sex: Male
  Weight: 70 kg

DRUGS (17)
  1. ASPIRINA [Concomitant]
     Active Substance: ASPIRIN
     Indication: PROPHYLAXIS
  2. CORTISONE [Suspect]
     Active Substance: CORTISONE\HYDROCORTISONE
     Indication: INFLUENZA
     Route: 065
  3. BRINTELLIX [Concomitant]
     Active Substance: VORTIOXETINE HYDROBROMIDE
     Indication: ANTIDEPRESSANT THERAPY
     Dosage: FORM STRENGTH: 10 MG
     Route: 050
     Dates: start: 1997
  4. ASPIRINA [Concomitant]
     Active Substance: ASPIRIN
     Indication: ANTICOAGULANT THERAPY
     Dosage: DAILY DOSE: 1 TABLET, 100 MG AFTER LUNCH
     Route: 050
     Dates: start: 1997
  5. SERTRALINE [Concomitant]
     Active Substance: SERTRALINE HYDROCHLORIDE
     Indication: ANTIDEPRESSANT THERAPY
     Dosage: DAILY DOSE: 1 TABLET, 50 MG MORNING
     Route: 050
  6. ESOMEPRAZOLE [Concomitant]
     Active Substance: ESOMEPRAZOLE
     Indication: PROPHYLAXIS
     Dosage: DAILY DOSE: 1 TABLET, 20 MG FASTING
     Route: 050
     Dates: start: 1997
  7. ROSUVASTATIN. [Concomitant]
     Active Substance: ROSUVASTATIN
     Indication: BLOOD CHOLESTEROL
     Dosage: DAILY DOSE: 1 TABLET, 20 MG AT NIGHT
     Route: 050
     Dates: start: 1997
  8. DEPAKENE [Suspect]
     Active Substance: VALPROIC ACID
     Indication: SEIZURE
     Dosage: FORM STRENGTH: 500 MG
     Route: 065
     Dates: start: 2013
  9. PRESSAT [Concomitant]
     Active Substance: AMLODIPINE BESYLATE
     Indication: HYPERTENSION
     Dosage: DAILY DOSE: 2 TABLETS, 5 MG MORNING/NIGHT
     Route: 050
     Dates: start: 1997
  10. PANCURON [Concomitant]
     Indication: VASCULAR DEVICE USER
     Dosage: FORM STRENGTH: 200 MG
     Route: 050
     Dates: start: 1997
  11. ASPIRINA [Concomitant]
     Active Substance: ASPIRIN
     Indication: HYPERTENSION
  12. DEPAKENE [Suspect]
     Active Substance: VALPROIC ACID
     Indication: SEIZURE
     Dosage: 2 TABLETS A DAY
     Route: 050
     Dates: start: 201603
  13. DEPAKENE [Suspect]
     Active Substance: VALPROIC ACID
     Indication: SEIZURE
     Route: 050
     Dates: start: 201510
  14. ARADOIS [Concomitant]
     Active Substance: LOSARTAN POTASSIUM
     Indication: HYPERTENSION
     Dosage: DAILY DOSE: 75 MG, 50 MG IN THE MORNING AND 25 MG AT NIGHT
     Route: 050
     Dates: start: 1997
  15. ANCORON [Concomitant]
     Active Substance: AMIODARONE HYDROCHLORIDE
     Indication: CARDIAC DISORDER
     Dosage: DAILY DOSE: 1 TABLET, 200 MG AT NIGHT
     Route: 050
  16. DEPAKENE [Suspect]
     Active Substance: VALPROIC ACID
     Indication: PETIT MAL EPILEPSY
     Dosage: FORM STRENGTH: 250 MG
     Route: 050
  17. DEPAKENE [Suspect]
     Active Substance: VALPROIC ACID
     Dosage: 2.5 TABLETS A DAY
     Route: 065
     Dates: start: 201706

REACTIONS (12)
  - Cerebrovascular accident [Recovering/Resolving]
  - Dysphagia [Not Recovered/Not Resolved]
  - Pyrexia [Recovered/Resolved]
  - Hiccups [Recovered/Resolved]
  - Incorrect route of drug administration [Unknown]
  - Lung disorder [Recovered/Resolved]
  - Gastrostomy [Unknown]
  - Seizure [Recovering/Resolving]
  - Petit mal epilepsy [Not Recovered/Not Resolved]
  - Medication error [Unknown]
  - Influenza [Unknown]
  - Ill-defined disorder [Not Recovered/Not Resolved]

NARRATIVE: CASE EVENT DATE: 20170318
